FAERS Safety Report 24543158 (Version 1)
Quarter: 2024Q4

REPORT INFORMATION
  Report Type: Spontaneous
  Country: IN (occurrence: IN)
  Receive Date: 20241024
  Receipt Date: 20241024
  Transmission Date: 20250114
  Serious: Yes (Other)
  Sender: RANBAXY
  Company Number: IN-SUN PHARMACEUTICAL INDUSTRIES LTD-2024R1-471090

PATIENT
  Age: 33 Year
  Sex: Female
  Weight: 102 kg

DRUGS (4)
  1. BUPIVACAINE [Suspect]
     Active Substance: BUPIVACAINE
     Indication: Local anaesthesia
     Dosage: UNK
     Route: 008
  2. FENTANYL [Suspect]
     Active Substance: FENTANYL
     Indication: Local anaesthesia
     Dosage: UNK
     Route: 008
  3. MORPHINE [Suspect]
     Active Substance: MORPHINE
     Indication: Local anaesthesia
     Dosage: UNK
     Route: 008
  4. ACETAMINOPHEN [Suspect]
     Active Substance: ACETAMINOPHEN
     Indication: Local anaesthesia
     Dosage: UNK
     Route: 008

REACTIONS (1)
  - Therapy non-responder [Unknown]
